APPROVED DRUG PRODUCT: TESTOSTERONE
Active Ingredient: TESTOSTERONE
Strength: 25MG/2.5GM PACKET
Dosage Form/Route: GEL;TRANSDERMAL
Application: A212984 | Product #003 | TE Code: AB1
Applicant: ENCUBE ETHICALS PRIVATE LTD
Approved: Jul 11, 2024 | RLD: No | RS: No | Type: RX